FAERS Safety Report 7874808-4 (Version None)
Quarter: 2011Q4

REPORT INFORMATION
  Report Type: 
  Country: None (occurrence: None)
  Receive Date: 20111031
  Receipt Date: 20111024
  Transmission Date: 20120403
  Serious: Yes (Other)
  Sender: FDA-Public Use
  Company Number: JP-JNJFOC-20111008947

PATIENT
  Age: 9 Decade
  Sex: Male

DRUGS (2)
  1. TRAMADOL HYDROCHLORIDE/ACETAMINOPHEN [Suspect]
     Indication: PAIN
     Route: 048
     Dates: start: 20111012
  2. AN UNKNOWN MEDICATION [Suspect]
     Indication: SLEEP DISORDER
     Route: 065

REACTIONS (1)
  - FALL [None]
